FAERS Safety Report 7767903-1 (Version None)
Quarter: 2011Q3

REPORT INFORMATION
  Report Type: 
  Country: None (occurrence: None)
  Receive Date: 20110922
  Receipt Date: 20100930
  Transmission Date: 20111222
  Serious: No
  Sender: FDA-Public Use
  Company Number: US-ASTRAZENECA-2010SE46074

PATIENT
  Sex: Female
  Weight: 63.5 kg

DRUGS (5)
  1. CITALOPRAN [Concomitant]
     Indication: DEPRESSION
  2. HYDROCODONE [Concomitant]
     Indication: BACK PAIN
     Dosage: 10/500 BID
  3. ALPRAZOLAM [Concomitant]
     Indication: ANXIETY
  4. SEROQUEL XR [Suspect]
     Indication: INSOMNIA
     Route: 048
  5. BENZTROPINE MES [Concomitant]
     Indication: TREMOR

REACTIONS (3)
  - TREMOR [None]
  - INSOMNIA [None]
  - DRUG DOSE OMISSION [None]
